FAERS Safety Report 8105265-0 (Version None)
Quarter: 2012Q1

REPORT INFORMATION
  Report Type: 
  Country: None (occurrence: None)
  Receive Date: 20120201
  Receipt Date: 20120130
  Transmission Date: 20120608
  Serious: No
  Sender: FDA-Public Use
  Company Number: US-BAYER-2012-010015

PATIENT
  Age: 58 Year
  Sex: Male

DRUGS (3)
  1. METFORMIN HCL [Concomitant]
  2. FLUTICASONE PROPIONATE [Concomitant]
  3. AVELOX [Suspect]
     Indication: SINUSITIS
     Dosage: 400 MG, QD
     Route: 048
     Dates: start: 20110428, end: 20110507

REACTIONS (5)
  - ARTHRALGIA [None]
  - BACK PAIN [None]
  - GROIN PAIN [None]
  - MUSCULAR WEAKNESS [None]
  - SCIATICA [None]
